FAERS Safety Report 5764326-1 (Version None)
Quarter: 2008Q2

REPORT INFORMATION
  Report Type: 
  Country: None (occurrence: None)
  Receive Date: 20080610
  Receipt Date: 20071120
  Transmission Date: 20081010
  Serious: No
  Sender: FDA-Public Use
  Company Number: US-BOEHRINGER INGELHEIM GMBH, GERMANY-2006-BP-14968BP

PATIENT
  Sex: Male
  Weight: 95 kg

DRUGS (27)
  1. MIRAPEX [Suspect]
     Indication: RESTLESS LEGS SYNDROME
     Route: 048
     Dates: start: 20000817
  2. LISINOPRIL [Concomitant]
     Indication: HYPERTENSION
     Route: 048
  3. VOLTAREN [Concomitant]
     Indication: PAIN IN EXTREMITY
     Route: 048
     Dates: start: 20060101
  4. VICODIN [Concomitant]
     Indication: PAIN IN EXTREMITY
     Route: 048
  5. DICLOFENAC SODIUM [Concomitant]
  6. HYDROCHLOROTHIAZIDE [Concomitant]
     Route: 048
  7. RHINOCORT [Concomitant]
     Route: 045
  8. OXYCODONE AND ACETAMINOPHEN [Concomitant]
     Route: 048
  9. TYLENOL [Concomitant]
  10. NSAID [Concomitant]
     Indication: PAIN
  11. PRINIVIL [Concomitant]
     Route: 048
  12. ZESTRIL [Concomitant]
     Route: 048
  13. ZYRTEC [Concomitant]
     Indication: HYPERSENSITIVITY
     Dates: start: 19980501
  14. CLARITIN [Concomitant]
     Indication: HYPERSENSITIVITY
     Dates: start: 19980421
  15. SINEMET CR [Concomitant]
     Indication: RESTLESS LEGS SYNDROME
  16. TEGRETOL [Concomitant]
     Indication: RESTLESS LEGS SYNDROME
  17. BECONASE [Concomitant]
     Dates: start: 20000201
  18. NEOSPORIN [Concomitant]
     Dates: start: 20000201
  19. OCEAN NASAL SPRAY [Concomitant]
     Dates: start: 20000201
  20. FLONASE [Concomitant]
     Dates: start: 20000201
  21. ACCUPRIL [Concomitant]
     Indication: BLOOD PRESSURE
  22. MONOPRIL [Concomitant]
     Indication: BLOOD PRESSURE
     Dates: start: 20000201
  23. WELLBUTRIN SR/XR [Concomitant]
     Indication: SMOKING CESSATION THERAPY
     Dates: start: 20000701
  24. ALLEGRA [Concomitant]
  25. NASAL CORTICOSTEROIDS [Concomitant]
  26. AMITRIPTYLINE HCL [Concomitant]
  27. CARBAMAZEPINE [Concomitant]

REACTIONS (8)
  - ANXIETY [None]
  - DEPRESSION [None]
  - EMOTIONAL DISTRESS [None]
  - FEAR [None]
  - OBSESSIVE-COMPULSIVE DISORDER [None]
  - PAIN [None]
  - PATHOLOGICAL GAMBLING [None]
  - STRESS [None]
